FAERS Safety Report 4279719-1 (Version None)
Quarter: 2004Q1

REPORT INFORMATION
  Report Type: 
  Country: None (occurrence: None)
  Receive Date: 20040127
  Receipt Date: 20040121
  Transmission Date: 20041129
  Serious: Yes (Life-Threatening)
  Sender: FDA-Public Use
  Company Number: WAES 0401USA01567

PATIENT
  Age: 63 Year
  Sex: Male

DRUGS (2)
  1. PROPECIA [Suspect]
     Indication: BENIGN PROSTATIC HYPERPLASIA
     Route: 048
     Dates: start: 20031001, end: 20040101
  2. FLOMAX [Concomitant]

REACTIONS (1)
  - MEDICATION ERROR [None]
